FAERS Safety Report 15468195 (Version 1)
Quarter: 2018Q4

REPORT INFORMATION
  Report Type: Spontaneous
  Country: CA (occurrence: CA)
  Receive Date: 20181005
  Receipt Date: 20181005
  Transmission Date: 20190204
  Serious: Yes (Hospitalization)
  Sender: FDA-Public Use
  Company Number: CA-CIPHER-2018-CA-001454

PATIENT
  Sex: Female

DRUGS (6)
  1. IMURAN [Concomitant]
     Active Substance: AZATHIOPRINE
  2. HYDROMORPHONE [Concomitant]
     Active Substance: HYDROMORPHONE
  3. TORADOL [Suspect]
     Active Substance: KETOROLAC TROMETHAMINE
     Indication: PAIN
     Route: 042
  4. INFLECTRA [Concomitant]
     Active Substance: INFLIXIMAB-DYYB
  5. BUDESONIDE. [Concomitant]
     Active Substance: BUDESONIDE
  6. TRAMADOL HYDROCHLORIDE. [Suspect]
     Active Substance: TRAMADOL HYDROCHLORIDE
     Indication: PAIN
     Route: 065

REACTIONS (3)
  - Incorrect route of product administration [Not Recovered/Not Resolved]
  - Drug ineffective [Not Recovered/Not Resolved]
  - Weight increased [Not Recovered/Not Resolved]
